FAERS Safety Report 19460050 (Version 1)
Quarter: 2021Q2

REPORT INFORMATION
  Report Type: Spontaneous
  Country: DE (occurrence: DE)
  Receive Date: 20210625
  Receipt Date: 20210625
  Transmission Date: 20210717
  Serious: Yes (Other)
  Sender: FDA-Public Use
  Company Number: DE-SUN PHARMACEUTICAL INDUSTRIES LTD-2021RR-301124

PATIENT
  Age: 1 Day
  Sex: Male
  Weight: 2.7 kg

DRUGS (4)
  1. VENLAFAXINE [Suspect]
     Active Substance: VENLAFAXINE HYDROCHLORIDE
     Indication: DEPRESSION
     Dosage: 225 [MG/D (BIS 112.5) ] ()
     Route: 064
     Dates: start: 20200419, end: 20210119
  2. ATOSIL [PROMETHAZINE HYDROCHLORIDE] [Suspect]
     Active Substance: PROMETHAZINE HYDROCHLORIDE
     Indication: SLEEP DISORDER
     Dosage: 25 [MG/D ] ()
     Route: 064
     Dates: start: 20200419, end: 20201223
  3. FOLSAURE [Concomitant]
     Active Substance: FOLIC ACID
     Indication: PROPHYLAXIS OF NEURAL TUBE DEFECT
     Dosage: ()
     Route: 064
  4. L?THYROXIN [Concomitant]
     Active Substance: LEVOTHYROXINE SODIUM
     Indication: HYPOTHYROIDISM
     Dosage: 100 [MICROG/D (BIS ?) ] ()
     Route: 064
     Dates: start: 20200419, end: 20210119

REACTIONS (2)
  - Small for dates baby [Recovered/Resolved]
  - Foetal exposure during pregnancy [Unknown]

NARRATIVE: CASE EVENT DATE: 20210119
